FAERS Safety Report 8820549 (Version 1)
Quarter: 2012Q4

REPORT INFORMATION
  Report Type: 
  Country: US (occurrence: US)
  Receive Date: 20121002
  Receipt Date: 20121002
  Transmission Date: 20130627
  Serious: Yes (Hospitalization, Other)
  Sender: FDA-Public Use
  Company Number: US-B.I. PHARMACEUTICALS,INC./RIDGEFIELD-2012-BP-14700BP

PATIENT
  Age: 89 Year
  Sex: Male
  Weight: 85.28 kg

DRUGS (2)
  1. PRADAXA [Suspect]
     Indication: ATRIAL FIBRILLATION
     Dosage: 300 mg
     Dates: start: 20101117, end: 20120113
  2. PRADAXA [Suspect]
     Dosage: 150 mg
     Dates: start: 20120113, end: 20120116

REACTIONS (4)
  - Haematochezia [Unknown]
  - Abdominal pain upper [Recovered/Resolved]
  - Upper gastrointestinal haemorrhage [Unknown]
  - Haematuria [Unknown]
